FAERS Safety Report 5863644-6 (Version None)
Quarter: 2008Q3

REPORT INFORMATION
  Report Type: 
  Country: None (occurrence: None)
  Receive Date: 20080828
  Receipt Date: 20080819
  Transmission Date: 20090109
  Serious: Yes (Hospitalization)
  Sender: FDA-Public Use
  Company Number: GB-ELI_LILLY_AND_COMPANY-GB200808001866

PATIENT
  Sex: Female
  Weight: 49 kg

DRUGS (5)
  1. HUMATROPE [Suspect]
     Indication: GROWTH HORMONE DEFICIENCY
     Dosage: 0.8 MG, DAILY (1/D)
     Route: 058
     Dates: start: 20031127
  2. HUMATROPE [Suspect]
     Dosage: 0.4 MG, UNK
     Dates: start: 20080701
  3. HUMATROPE [Suspect]
     Dosage: 0.6 MG, UNK
     Dates: start: 20080716
  4. THYROXINE [Concomitant]
     Indication: HYPOTHYROIDISM
  5. LOESTRIN 1.5/30 [Concomitant]
     Indication: HYPOGONADISM

REACTIONS (2)
  - HYPOAESTHESIA [None]
  - PARAESTHESIA [None]
